FAERS Safety Report 18558032 (Version 1)
Quarter: 2020Q4

REPORT INFORMATION
  Report Type: Other
  Country: CA (occurrence: CA)
  Receive Date: 20201130
  Receipt Date: 20201130
  Transmission Date: 20210114
  Serious: Yes (Hospitalization, Other)
  Sender: FDA-Public Use
  Company Number: CA-CELLTRION INC.-2020CA032511

PATIENT

DRUGS (12)
  1. RITUXIMAB (UNKNOWN) [Suspect]
     Active Substance: RITUXIMAB
     Indication: VASCULITIS
     Dosage: UNK
     Route: 042
  2. MYCOPHENOLATE MOFETIL. [Suspect]
     Active Substance: MYCOPHENOLATE MOFETIL
     Indication: PRODUCT USED FOR UNKNOWN INDICATION
     Dosage: 1000 MG
     Route: 065
  3. MYCOPHENOLATE MOFETIL. [Suspect]
     Active Substance: MYCOPHENOLATE MOFETIL
     Indication: PRODUCT USED FOR UNKNOWN INDICATION
     Dosage: 500 MG
     Route: 065
  4. DIGOXIN. [Concomitant]
     Active Substance: DIGOXIN
     Dosage: 0.0625 MG
     Route: 048
  5. PREDNISONE. [Concomitant]
     Active Substance: PREDNISONE
     Dosage: 10 MG
     Route: 065
  6. PREDNISONE. [Concomitant]
     Active Substance: PREDNISONE
     Dosage: 10 MG
     Route: 065
  7. LASIX [Concomitant]
     Active Substance: FUROSEMIDE
     Dosage: UNK
  8. METOPROLOL. [Concomitant]
     Active Substance: METOPROLOL
     Dosage: 50 MG, 2 EVERY 1 DAY
     Route: 048
  9. RITUXIMAB (UNKNOWN) [Suspect]
     Active Substance: RITUXIMAB
     Indication: GRANULOMATOSIS WITH POLYANGIITIS
     Dosage: 500 MG
     Route: 042
  10. ASPIRIN [ACETYLSALICYLIC ACID] [Concomitant]
     Active Substance: ASPIRIN
     Dosage: 81 MG
     Route: 048
  11. PANTOPRAZOLE [Concomitant]
     Active Substance: PANTOPRAZOLE
     Dosage: 40 MG
     Route: 048
  12. RAMIPRIL. [Concomitant]
     Active Substance: RAMIPRIL
     Dosage: 2.5 MG
     Route: 065

REACTIONS (33)
  - Acute stress disorder [Unknown]
  - Inferior vena cava dilatation [Unknown]
  - Weight decreased [Unknown]
  - Atrial fibrillation [Unknown]
  - Tachycardia [Unknown]
  - Atrial enlargement [Unknown]
  - Venous pressure jugular increased [Unknown]
  - Ventricular extrasystoles [Unknown]
  - Pulmonary oedema [Unknown]
  - Diarrhoea [Unknown]
  - Left ventricular dilatation [Unknown]
  - Mitral valve incompetence [Unknown]
  - Cellulitis [Unknown]
  - Seizure [Unknown]
  - Cardiomyopathy [Unknown]
  - Pulmonary hypertension [Unknown]
  - Joint swelling [Unknown]
  - Left ventricular dysfunction [Unknown]
  - End stage renal disease [Unknown]
  - Erythema [Unknown]
  - Intentional product use issue [Unknown]
  - Atelectasis [Unknown]
  - Dilatation ventricular [Unknown]
  - Rash [Unknown]
  - Asthenia [Unknown]
  - Oedema peripheral [Unknown]
  - Pleural effusion [Unknown]
  - Pneumonia aspiration [Unknown]
  - Off label use [Unknown]
  - Cardiac arrest [Unknown]
  - Tricuspid valve incompetence [Unknown]
  - Ventricular hypokinesia [Unknown]
  - Heart rate increased [Unknown]
